FAERS Safety Report 9080276 (Version 1)
Quarter: 2013Q1

REPORT INFORMATION
  Report Type: Report from Study
  Country: US (occurrence: US)
  Receive Date: 20130130
  Receipt Date: 20130130
  Transmission Date: 20140127
  Serious: No
  Sender: FDA-Public Use
  Company Number: US-ABBOTT-12P-163-0972594-00

PATIENT
  Age: 47 Year
  Sex: Female

DRUGS (9)
  1. HUMIRA 40 MG/0.8 ML PEN [Suspect]
     Indication: CROHN^S DISEASE
     Dates: start: 201203
  2. FOLIC ACID [Concomitant]
     Indication: ALOPECIA
     Dates: start: 201205
  3. BIOTIN [Concomitant]
     Indication: ALOPECIA
     Dosage: 2 PILLS EVERY DAY
     Dates: start: 201205
  4. B-12 [Concomitant]
     Indication: ALOPECIA
     Dosage: EVERY DAY
     Dates: start: 201205
  5. LIALDA [Concomitant]
     Indication: CROHN^S DISEASE
     Dosage: 4.8GM EVERY DAY
  6. METOPROLOL [Concomitant]
     Indication: BLOOD PRESSURE
     Dosage: DECREASED FROM 50MG TO 25MG DAILY
  7. LISINOPRIL [Concomitant]
     Indication: BLOOD PRESSURE
     Dosage: 10MG DAILY
  8. CITALOPRAM [Concomitant]
     Indication: AFFECTIVE DISORDER
     Dosage: 20MG DAILY
  9. FLUOXETINE [Concomitant]
     Indication: AFFECTIVE DISORDER
     Dosage: 10MG DAILY

REACTIONS (6)
  - Pruritus [Not Recovered/Not Resolved]
  - Local swelling [Not Recovered/Not Resolved]
  - Injection site swelling [Not Recovered/Not Resolved]
  - Injection site erythema [Not Recovered/Not Resolved]
  - Cellulitis [Not Recovered/Not Resolved]
  - Alanine aminotransferase increased [Not Recovered/Not Resolved]
